FAERS Safety Report 5702856-9 (Version None)
Quarter: 2008Q2

REPORT INFORMATION
  Report Type: 
  Country: None (occurrence: None)
  Receive Date: 20080410
  Receipt Date: 20080410
  Transmission Date: 20081010
  Serious: Yes (Hospitalization)
  Sender: FDA-Public Use
  Company Number: None

PATIENT
  Sex: Male
  Weight: 77.6 kg

DRUGS (2)
  1. CISPLATIN [Suspect]
     Dosage: 200 MG
     Dates: end: 20080402
  2. MORPHINE [Concomitant]

REACTIONS (2)
  - NAUSEA [None]
  - VOMITING [None]
